FAERS Safety Report 11392926 (Version 1)
Quarter: 2015Q3

REPORT INFORMATION
  Report Type: Spontaneous
  Country: US (occurrence: US)
  Receive Date: 20150818
  Receipt Date: 20150818
  Transmission Date: 20151125
  Serious: Yes (Hospitalization, Other)
  Sender: FDA-Public Use
  Company Number: US-RB PHARMACEUTICALS LIMITED-RB-082070-2015

PATIENT
  Age: 0 Year
  Sex: Male

DRUGS (5)
  1. BUPRENORPHINE GENERIC TAB [Suspect]
     Active Substance: BUPRENORPHINE
     Indication: DRUG DEPENDENCE
     Dosage: TWO TO TWO AND HALF TABLETS, DAILY
     Route: 064
     Dates: start: 20140903, end: 20150423
  2. BUPRENORPHINE GENERIC TAB [Suspect]
     Active Substance: BUPRENORPHINE
     Dosage: TWO TO TWO AND HALF TABLETS, DAILY
     Route: 063
     Dates: start: 20150423
  3. NICOTINE. [Suspect]
     Active Substance: NICOTINE
     Indication: PRODUCT USED FOR UNKNOWN INDICATION
     Dosage: 6 CIGARETTES DAILY
     Route: 064
     Dates: start: 201407, end: 20150423
  4. NICOTINE. [Suspect]
     Active Substance: NICOTINE
     Dosage: 6 CIGARETTES DAILY
     Route: 063
     Dates: start: 20150423
  5. SUBOXONE [Suspect]
     Active Substance: BUPRENORPHINE HYDROCHLORIDE\NALOXONE HYDROCHLORIDE
     Indication: DRUG DEPENDENCE
     Dosage: 8 MG, 2 FILMS DAILY
     Route: 064
     Dates: start: 201407, end: 20140902

REACTIONS (5)
  - Drug withdrawal syndrome neonatal [Recovered/Resolved]
  - Exposure during breast feeding [Not Recovered/Not Resolved]
  - Respiratory disorder neonatal [Recovered/Resolved]
  - Foetal exposure during pregnancy [Recovered/Resolved]
  - Pneumothorax spontaneous [Recovered/Resolved]

NARRATIVE: CASE EVENT DATE: 201407
